FAERS Safety Report 11127037 (Version 1)
Quarter: 2015Q2

REPORT INFORMATION
  Report Type: Spontaneous
  Country: IE (occurrence: IE)
  Receive Date: 20150521
  Receipt Date: 20150521
  Transmission Date: 20150821
  Serious: Yes (Hospitalization, Other)
  Sender: FDA-Public Use
  Company Number: IE-PAR PHARMACEUTICAL, INC-2015SCPR013983

PATIENT

DRUGS (4)
  1. ADRENALIN [Suspect]
     Active Substance: EPINEPHRINE
     Indication: ANAESTHESIA
     Dosage: UNK UNK, UNKNOWN, INJECTED INTO THE LACRIMAL SAC
     Route: 050
  2. COCAINE [Suspect]
     Active Substance: COCAINE
     Indication: HAEMOSTASIS
     Dosage: UNK UNK, UNKNOWN, PLACED IN THE NOSE UNDER THE INFERIOR TURBINATE
     Route: 061
  3. COCAINE [Suspect]
     Active Substance: COCAINE
     Indication: ANAESTHESIA
     Dosage: UNK, UNKNOWN, INJECTED INTO THE LACRIMAL SAC
     Route: 050
  4. ADRENALIN [Suspect]
     Active Substance: EPINEPHRINE
     Indication: HAEMOSTASIS
     Dosage: 1 IN 1000, UNKNOWN, PLACED IN THE NOSE UNDER THE INFERIOR TURBINATE
     Route: 061

REACTIONS (4)
  - Myocardial ischaemia [Recovered/Resolved]
  - Acute pulmonary oedema [Recovered/Resolved]
  - Ejection fraction decreased [Recovered/Resolved]
  - Off label use [Unknown]
